FAERS Safety Report 20446516 (Version 2)
Quarter: 2022Q2

REPORT INFORMATION
  Report Type: Spontaneous
  Country: US (occurrence: US)
  Receive Date: 20220208
  Receipt Date: 20220620
  Transmission Date: 20220720
  Serious: No
  Sender: FDA-Public Use
  Company Number: US-Blueprint Medicines Corporation-SP-US-2022-000311

PATIENT
  Sex: Female

DRUGS (3)
  1. AYVAKIT [Suspect]
     Active Substance: AVAPRITINIB
     Indication: Systemic mastocytosis
     Route: 048
     Dates: start: 20210930
  2. AYVAKIT [Suspect]
     Active Substance: AVAPRITINIB
     Dosage: NOT PROVIDED
     Route: 048
  3. PATADAY [Concomitant]
     Active Substance: OLOPATADINE HYDROCHLORIDE
     Indication: Product used for unknown indication
     Route: 047

REACTIONS (9)
  - Feeling abnormal [Not Recovered/Not Resolved]
  - Depression [Unknown]
  - Eye irritation [Unknown]
  - Aphasia [Unknown]
  - Eye pruritus [Unknown]
  - Memory impairment [Not Recovered/Not Resolved]
  - Lacrimation increased [Unknown]
  - Bone pain [Unknown]
  - Product dose omission issue [Unknown]
